FAERS Safety Report 17228492 (Version 1)
Quarter: 2020Q1

REPORT INFORMATION
  Report Type: Spontaneous
  Country: CN (occurrence: CN)
  Receive Date: 20200103
  Receipt Date: 20200103
  Transmission Date: 20200409
  Serious: Yes (Other)
  Sender: FDA-Public Use
  Company Number: CN-STRIDES ARCOLAB LIMITED-2019SP013475

PATIENT

DRUGS (4)
  1. HYDROCHLOROTHIAZIDE. [Suspect]
     Active Substance: HYDROCHLOROTHIAZIDE
     Indication: ATRIAL FIBRILLATION
  2. AMLODIPINE [Suspect]
     Active Substance: AMLODIPINE BESYLATE
     Indication: HYPERTENSION
     Dosage: 5 MG/TABLET AT A FREQUENCY OF ONE TO TWO TABLETS/DAY
     Route: 065
  3. HYDROCHLOROTHIAZIDE. [Suspect]
     Active Substance: HYDROCHLOROTHIAZIDE
     Indication: HYPERTENSION
     Dosage: 6.25 MG/TABLET AT A FREQUENCY OF TWO TABLETS/DAY
     Route: 065
  4. AMLODIPINE [Suspect]
     Active Substance: AMLODIPINE BESYLATE
     Indication: ATRIAL FIBRILLATION

REACTIONS (2)
  - Hypothyroidism [Recovered/Resolved]
  - Off label use [Unknown]
